FAERS Safety Report 10391030 (Version 2)
Quarter: 2015Q4

REPORT INFORMATION
  Report Type: Spontaneous
  Country: DK (occurrence: DK)
  Receive Date: 20140818
  Receipt Date: 20151116
  Transmission Date: 20160304
  Serious: Yes (Other)
  Sender: FDA-Public Use
  Company Number: DK-ACTAVIS-2014-17705

PATIENT
  Sex: Male

DRUGS (2)
  1. AMITRIPTYLINE (UNKNOWN) [Suspect]
     Active Substance: AMITRIPTYLINE
     Indication: NEUROLOGICAL INFECTION
     Dosage: 10 MG, DAILY
     Route: 048
     Dates: start: 20110506, end: 20110802
  2. GABAPENTIN. [Suspect]
     Active Substance: GABAPENTIN
     Indication: ARTHRALGIA
     Dosage: 300 MG, TID. FIRST DOSE WAS 300 MG X 2 DAILY, INCREASED TO 300 MG X 3 DAILY ON 30/MAY/2011
     Route: 048
     Dates: start: 20110513, end: 20110815

REACTIONS (7)
  - Blindness [Not Recovered/Not Resolved]
  - Parosmia [Not Recovered/Not Resolved]
  - Cataract operation [Recovered/Resolved]
  - Weight increased [Recovered/Resolved]
  - Dysgeusia [Not Recovered/Not Resolved]
  - Cataract [Recovered/Resolved]
  - Retinal depigmentation [Not Recovered/Not Resolved]

NARRATIVE: CASE EVENT DATE: 2011
